FAERS Safety Report 21942420 (Version 1)
Quarter: 2023Q1

REPORT INFORMATION
  Report Type: Spontaneous
  Country: JP (occurrence: JP)
  Receive Date: 20230202
  Receipt Date: 20230202
  Transmission Date: 20230418
  Serious: No
  Sender: FDA-Public Use
  Company Number: JP-EXELIXIS-CABO-22057714

PATIENT

DRUGS (2)
  1. CABOMETYX [Suspect]
     Active Substance: CABOZANTINIB S-MALATE
     Indication: Renal cancer metastatic
     Dosage: UNK
     Route: 048
  2. NIVOLUMAB [Concomitant]
     Active Substance: NIVOLUMAB
     Indication: Renal cancer metastatic
     Dosage: UNK
     Route: 065

REACTIONS (1)
  - Hepatic function abnormal [Unknown]
